FAERS Safety Report 4610047-8 (Version None)
Quarter: 2005Q1

REPORT INFORMATION
  Report Type: 
  Country: None (occurrence: None)
  Receive Date: 20050316
  Receipt Date: 20050315
  Transmission Date: 20050727
  Serious: Yes (Other)
  Sender: FDA-Public Use
  Company Number: US-GLAXOSMITHKLINE-A0549860A

PATIENT
  Age: 70 Year
  Sex: Female

DRUGS (11)
  1. DYAZIDE [Suspect]
     Indication: HYPERTENSION
     Dosage: 1CAP PER DAY
     Route: 048
  2. TENORMIN [Concomitant]
  3. NAPROSYN [Concomitant]
  4. PREMARIN [Concomitant]
  5. COUMADIN [Concomitant]
  6. CELEXA [Concomitant]
  7. PROTONIX [Concomitant]
  8. OSTEO BIFLEX [Concomitant]
  9. VITAMIN A [Concomitant]
  10. COD LIVER OIL [Concomitant]
  11. CENTRUM [Concomitant]

REACTIONS (2)
  - ATRIAL FIBRILLATION [None]
  - JOINT SWELLING [None]
